FAERS Safety Report 9346102 (Version 1)
Quarter: 2013Q2

REPORT INFORMATION
  Report Type: Spontaneous
  Country: US (occurrence: US)
  Receive Date: 20130613
  Receipt Date: 20130613
  Transmission Date: 20140414
  Serious: Yes (Hospitalization, Congenital Anomaly, Other)
  Sender: FDA-Public Use
  Company Number: US-ELI_LILLY_AND_COMPANY-US201306000972

PATIENT
  Sex: 0

DRUGS (3)
  1. PROZAC [Suspect]
     Dosage: 1 DF, UNKNOWN
     Route: 064
  2. ZOLOFT [Concomitant]
     Dosage: 1 DF, UNKNOWN
     Route: 064
  3. CELEXA [Concomitant]
     Dosage: 1 DF, UNKNOWN
     Route: 064

REACTIONS (3)
  - Congenital cardiovascular anomaly [Unknown]
  - Cleft lip and palate [Unknown]
  - Foetal exposure during pregnancy [Unknown]
